FAERS Safety Report 24680460 (Version 1)
Quarter: 2024Q4

REPORT INFORMATION
  Report Type: Report from Study
  Country: ZA (occurrence: ZA)
  Receive Date: 20241129
  Receipt Date: 20241129
  Transmission Date: 20250114
  Serious: Yes (Hospitalization)
  Sender: ALEXION PHARMACEUTICALS
  Company Number: ZA-AstraZeneca-CH-00753643A

PATIENT
  Age: 52 Year

DRUGS (40)
  1. BUDESONIDE\FORMOTEROL FUMARATE DIHYDRATE [Suspect]
     Active Substance: BUDESONIDE\FORMOTEROL FUMARATE DIHYDRATE
     Indication: Asthma
     Dosage: 160 MICROGRAM PER INHALATION
  2. BUDESONIDE\FORMOTEROL FUMARATE DIHYDRATE [Suspect]
     Active Substance: BUDESONIDE\FORMOTEROL FUMARATE DIHYDRATE
     Dosage: 160 MICROGRAM PER INHALATION
  3. BUDESONIDE\FORMOTEROL FUMARATE DIHYDRATE [Suspect]
     Active Substance: BUDESONIDE\FORMOTEROL FUMARATE DIHYDRATE
     Dosage: 160 MICROGRAM PER INHALATION
  4. BUDESONIDE\FORMOTEROL FUMARATE DIHYDRATE [Suspect]
     Active Substance: BUDESONIDE\FORMOTEROL FUMARATE DIHYDRATE
     Dosage: 160 MICROGRAM PER INHALATION
  5. NIFEDIPINE [Concomitant]
     Active Substance: NIFEDIPINE
     Indication: Hypertension
  6. NIFEDIPINE [Concomitant]
     Active Substance: NIFEDIPINE
  7. NIFEDIPINE [Concomitant]
     Active Substance: NIFEDIPINE
  8. NIFEDIPINE [Concomitant]
     Active Substance: NIFEDIPINE
  9. NIFEDIPINE [Concomitant]
     Active Substance: NIFEDIPINE
  10. NIFEDIPINE [Concomitant]
     Active Substance: NIFEDIPINE
  11. NIFEDIPINE [Concomitant]
     Active Substance: NIFEDIPINE
  12. NIFEDIPINE [Concomitant]
     Active Substance: NIFEDIPINE
  13. MEDI-KEEL A BLACKCURRENT [Concomitant]
  14. MEDI-KEEL A BLACKCURRENT [Concomitant]
  15. MEDI-KEEL A BLACKCURRENT [Concomitant]
  16. MEDI-KEEL A BLACKCURRENT [Concomitant]
  17. OROTHROAT PLUS BLACKCURRANT [Concomitant]
  18. OROTHROAT PLUS BLACKCURRANT [Concomitant]
  19. OROTHROAT PLUS BLACKCURRANT [Concomitant]
  20. OROTHROAT PLUS BLACKCURRANT [Concomitant]
  21. FUROSEMIDE [Concomitant]
     Active Substance: FUROSEMIDE
     Indication: Hypertension
  22. FUROSEMIDE [Concomitant]
     Active Substance: FUROSEMIDE
  23. FUROSEMIDE [Concomitant]
     Active Substance: FUROSEMIDE
  24. FUROSEMIDE [Concomitant]
     Active Substance: FUROSEMIDE
  25. SOMNIL [Concomitant]
  26. SOMNIL [Concomitant]
  27. SOMNIL [Concomitant]
  28. SOMNIL [Concomitant]
  29. SIMVASTATIN [Concomitant]
     Active Substance: SIMVASTATIN
     Indication: Blood cholesterol
  30. SIMVASTATIN [Concomitant]
     Active Substance: SIMVASTATIN
  31. SIMVASTATIN [Concomitant]
     Active Substance: SIMVASTATIN
  32. SIMVASTATIN [Concomitant]
     Active Substance: SIMVASTATIN
  33. ASPIRIN [Concomitant]
     Active Substance: ASPIRIN
  34. ASPIRIN [Concomitant]
     Active Substance: ASPIRIN
  35. ASPIRIN [Concomitant]
     Active Substance: ASPIRIN
  36. ASPIRIN [Concomitant]
     Active Substance: ASPIRIN
  37. LEVETIRACETAM [Concomitant]
     Active Substance: LEVETIRACETAM
     Indication: Epilepsy
  38. LEVETIRACETAM [Concomitant]
     Active Substance: LEVETIRACETAM
  39. LEVETIRACETAM [Concomitant]
     Active Substance: LEVETIRACETAM
  40. LEVETIRACETAM [Concomitant]
     Active Substance: LEVETIRACETAM

REACTIONS (2)
  - Infection [Unknown]
  - Peripheral swelling [Unknown]
